FAERS Safety Report 18898541 (Version 2)
Quarter: 2021Q1

REPORT INFORMATION
  Report Type: Spontaneous
  Country: US (occurrence: US)
  Receive Date: 20210216
  Receipt Date: 20210217
  Transmission Date: 20210420
  Serious: Yes (Life-Threatening, Hospitalization, Other)
  Sender: FDA-Public Use
  Company Number: US-PFIZER INC-2021114797

PATIENT
  Age: 59 Year
  Sex: Female

DRUGS (13)
  1. OCTREOTIDE. [Suspect]
     Active Substance: OCTREOTIDE
     Dosage: 150 UG (FREQ:8 H;)
     Route: 058
  2. OCTREOTIDE. [Suspect]
     Active Substance: OCTREOTIDE
     Dosage: 150 UG (FREQ:1 H;24?H COURSE OF CONTINUOUS OCTREOTIDE AT 150 UG/H)
  3. MILRINONE [Concomitant]
     Active Substance: MILRINONE
     Indication: CARDIOGENIC SHOCK
     Dosage: UNK
  4. OCTREOTIDE. [Suspect]
     Active Substance: OCTREOTIDE
     Indication: CARCINOID SYNDROME
     Dosage: 500 UG FREQ:1 H; (INFUSION)
  5. OCTREOTIDE. [Suspect]
     Active Substance: OCTREOTIDE
     Dosage: 60 MG, MONTHLY (DEPOT)
  6. DOBUTAMINE HCL [Suspect]
     Active Substance: DOBUTAMINE HYDROCHLORIDE
     Indication: CARDIOGENIC SHOCK
     Dosage: UNK
  7. DOXORUBICIN [Concomitant]
     Active Substance: DOXORUBICIN
     Indication: NEUROENDOCRINE TUMOUR
     Dosage: TACE
  8. VASOPRESSIN. [Suspect]
     Active Substance: VASOPRESSIN
     Indication: CARDIOGENIC SHOCK
     Dosage: UNK
  9. OCTREOTIDE. [Suspect]
     Active Substance: OCTREOTIDE
     Dosage: 150 UG FREQ:1 H; (INFUSION)
  10. OCTREOTIDE. [Suspect]
     Active Substance: OCTREOTIDE
     Dosage: 300 UG FREQ:1 H; (INFUSION)
  11. MITOMYCIN. [Concomitant]
     Active Substance: MITOMYCIN
     Indication: NEUROENDOCRINE TUMOUR
     Dosage: TACE
  12. OCTREOTIDE. [Suspect]
     Active Substance: OCTREOTIDE
     Dosage: 500 UG
  13. NITROPRUSSIDE [Concomitant]
     Active Substance: NITROPRUSSIDE
     Indication: CARDIOGENIC SHOCK
     Dosage: UNK

REACTIONS (8)
  - Tumour necrosis [Recovered/Resolved]
  - Cardiac failure [Recovered/Resolved]
  - Hypoperfusion [Recovered/Resolved]
  - Carcinoid crisis [Recovered/Resolved]
  - Renal failure [Recovered/Resolved]
  - Vasoconstriction [Recovered/Resolved]
  - Cardiogenic shock [Recovered/Resolved]
  - Condition aggravated [Recovered/Resolved]
